FAERS Safety Report 23703617 (Version 1)
Quarter: 2024Q2

REPORT INFORMATION
  Report Type: Spontaneous
  Country: US (occurrence: None)
  Receive Date: 20240403
  Receipt Date: 20240403
  Transmission Date: 20240715
  Serious: Yes (Other)
  Sender: FDA-Public Use
  Company Number: None

PATIENT
  Age: 73 Year
  Sex: Female
  Weight: 81.81 kg

DRUGS (15)
  1. REVLIMID [Suspect]
     Active Substance: LENALIDOMIDE
     Dosage: OTHER FREQUENCY : 21 DAYS ON/7 OFF;?
     Route: 048
  2. ALENDRONATE [Concomitant]
     Active Substance: ALENDRONATE SODIUM
  3. CALCIUM\MAGNESIUM [Concomitant]
     Active Substance: CALCIUM\MAGNESIUM
  4. CLARITIN [Concomitant]
     Active Substance: LORATADINE
  5. COENZYME Q10 [Concomitant]
     Active Substance: DIETARY SUPPLEMENT\UBIDECARENONE
  6. CYCLOBENZAPRINE [Concomitant]
     Active Substance: CYCLOBENZAPRINE
  7. DULOXETINE [Concomitant]
     Active Substance: DULOXETINE
  8. FISH OIL [Concomitant]
     Active Substance: FISH OIL
  9. FLUCONAZOLE [Concomitant]
     Active Substance: FLUCONAZOLE
  10. LEVOFLOXACIN [Concomitant]
     Active Substance: LEVOFLOXACIN
  11. LEVOTHYROXINE [Concomitant]
     Active Substance: LEVOTHYROXINE\LEVOTHYROXINE SODIUM
  12. MELOXICAM [Concomitant]
     Active Substance: MELOXICAM
  13. ROSUVASTATIN [Concomitant]
     Active Substance: ROSUVASTATIN
  14. VITAMIN C [Concomitant]
     Active Substance: ASCORBIC ACID
  15. VITAMIN D3 [Concomitant]
     Active Substance: CHOLECALCIFEROL

REACTIONS (3)
  - Neutrophil count abnormal [None]
  - Platelet disorder [None]
  - Laboratory test abnormal [None]

NARRATIVE: CASE EVENT DATE: 20240402
